FAERS Safety Report 9845051 (Version 4)
Quarter: 2015Q1

REPORT INFORMATION
  Report Type: Spontaneous
  Country: US (occurrence: None)
  Receive Date: 20140122
  Receipt Date: 20150323
  Transmission Date: 20150721
  Serious: Yes (Hospitalization)
  Sender: FDA-Public Use
  Company Number: UTC-042520

PATIENT
  Age: 61 Year
  Sex: Female
  Weight: 76.8 kg

DRUGS (5)
  1. GABAPENTIN. [Suspect]
     Active Substance: GABAPENTIN
     Indication: PAIN
  2. TYVASO [Suspect]
     Active Substance: TREPROSTINIL
     Indication: PULMONARY ARTERIAL HYPERTENSION
     Dosage: 18-54 MCG (4 IN 1 D), INHALATION
     Route: 055
     Dates: start: 20131028
  3. TRACLEER [Concomitant]
     Active Substance: BOSENTAN\BOSENTAN MONOHYDRATE
  4. ADCIRCA [Concomitant]
     Active Substance: TADALAFIL
  5. FLOLAN [Suspect]
     Active Substance: EPOPROSTENOL SODIUM
     Indication: PULMONARY ARTERIAL HYPERTENSION
     Dosage: 19.976 UG/KG (0.0104 UG/KG, 1 IN 1 MIN), INTRAVENOUS
     Route: 041
     Dates: start: 20100206

REACTIONS (29)
  - Flushing [None]
  - Oedema [None]
  - Fatigue [None]
  - Cardiac failure [None]
  - Overdose [None]
  - Dizziness [None]
  - Respiratory tract congestion [None]
  - Chest discomfort [None]
  - Device dislocation [None]
  - Pain in extremity [None]
  - Dyspnoea [None]
  - Pain [None]
  - Pneumonia [None]
  - Pain in jaw [None]
  - Headache [None]
  - Injection site discomfort [None]
  - Device leakage [None]
  - Catheter site related reaction [None]
  - Throat irritation [None]
  - Anxiety [None]
  - Painful respiration [None]
  - Peripheral swelling [None]
  - Sensation of foreign body [None]
  - Nervousness [None]
  - Cough [None]
  - Device malfunction [None]
  - Confusional state [None]
  - Chest pain [None]
  - Arthralgia [None]

NARRATIVE: CASE EVENT DATE: 201312
